FAERS Safety Report 8499346-X (Version None)
Quarter: 2012Q2

REPORT INFORMATION
  Report Type: 
  Country: None (occurrence: None)
  Receive Date: 20120618
  Receipt Date: 20120605
  Transmission Date: 20120825
  Serious: Yes (Death, Hospitalization, Disabling)
  Sender: FDA-Public Use
  Company Number: 2012PROUSA01454

PATIENT
  Age: 67 Year
  Sex: Male
  Weight: 85.3 kg

DRUGS (11)
  1. AMLODIPINE [Concomitant]
  2. TOPROL-XL [Concomitant]
  3. KLOR-CON 9POTASSIUM CHLORIDE) [Concomitant]
  4. LORTB /00607101/ (HYDROCODONE BITARTRATE, PARACEMTAMOL) [Concomitant]
  5. PREDNISONE TAB [Concomitant]
  6. PROVENGE [Suspect]
     Indication: PROSTATE CANCER METASTATIC
     Dosage: 250 ML, SINGLE, INTRAVENOUS; 250 ML, SINGLE, INTRAVENOUS; 250 ML, SINGLE, INTRAVENOUS
     Route: 042
     Dates: start: 20111013, end: 20111013
  7. PROVENGE [Suspect]
     Indication: PROSTATE CANCER METASTATIC
     Dosage: 250 ML, SINGLE, INTRAVENOUS; 250 ML, SINGLE, INTRAVENOUS; 250 ML, SINGLE, INTRAVENOUS
     Route: 042
     Dates: start: 20110929, end: 20110929
  8. PROVENGE [Suspect]
     Indication: PROSTATE CANCER METASTATIC
     Dosage: 250 ML, SINGLE, INTRAVENOUS; 250 ML, SINGLE, INTRAVENOUS; 250 ML, SINGLE, INTRAVENOUS
     Route: 042
     Dates: start: 20111027, end: 20111027
  9. DOCETAXEL [Concomitant]
  10. PROVENGE [Suspect]
     Dates: start: 20111013, end: 20111013
  11. PROVENGE [Suspect]
     Dates: start: 20111027, end: 20111027

REACTIONS (3)
  - EMBOLIC STROKE [None]
  - LACUNAR INFARCTION [None]
  - DELIRIUM [None]
